FAERS Safety Report 9753842 (Version 1)
Quarter: 2013Q4

REPORT INFORMATION
  Report Type: Spontaneous
  Country: DE (occurrence: None)
  Receive Date: 20131211
  Receipt Date: 20131211
  Transmission Date: 20140711
  Serious: Yes (Death)
  Sender: FDA-Public Use
  Company Number: FK201305251

PATIENT
  Age: 74 Year
  Sex: Male

DRUGS (2)
  1. AMIODARONE HCL [Suspect]
     Indication: ARRHYTHMIA
  2. SOTALOL [Suspect]

REACTIONS (8)
  - Pneumonitis [None]
  - Respiratory failure [None]
  - Multi-organ failure [None]
  - Accidental overdose [None]
  - Pulmonary toxicity [None]
  - Coronary artery disease [None]
  - Tachycardia [None]
  - Pneumonia [None]
